FAERS Safety Report 25224763 (Version 3)
Quarter: 2025Q2

REPORT INFORMATION
  Report Type: Spontaneous
  Country: ES (occurrence: ES)
  Receive Date: 20250422
  Receipt Date: 20250517
  Transmission Date: 20250716
  Serious: Yes (Hospitalization, Other)
  Sender: ACCORD
  Company Number: ES-Accord-480318

PATIENT
  Age: 63 Year
  Sex: Female

DRUGS (2)
  1. MYCOPHENOLATE MOFETIL [Suspect]
     Active Substance: MYCOPHENOLATE MOFETIL
     Indication: Autoimmune hepatitis
     Dates: start: 2017, end: 2023
  2. BUDESONIDE [Concomitant]
     Active Substance: BUDESONIDE
     Indication: Autoimmune hepatitis
     Dates: start: 2017

REACTIONS (3)
  - Central nervous system lymphoma [Recovering/Resolving]
  - Off label use [Unknown]
  - Epstein-Barr virus associated lymphoma [Recovering/Resolving]

NARRATIVE: CASE EVENT DATE: 20170101
